FAERS Safety Report 24622407 (Version 1)
Quarter: 2024Q4

REPORT INFORMATION
  Report Type: Report from Study
  Country: MX (occurrence: MX)
  Receive Date: 20241115
  Receipt Date: 20241115
  Transmission Date: 20250115
  Serious: Yes (Other)
  Sender: ABBVIE
  Company Number: MX-ABBVIE-6004780

PATIENT
  Age: 62 Year
  Sex: Female
  Weight: 62 kg

DRUGS (1)
  1. VENCLEXTA [Suspect]
     Active Substance: VENETOCLAX
     Indication: Chronic lymphocytic leukaemia
     Dosage: 2 PILLS ONE WEEK AND 1 PILL ANOTHER WEEK, FORM STRENGTH UNITS: 50 MILLIGRAM, LAST ADMIN DATE 2024
     Route: 048
     Dates: start: 20240928

REACTIONS (4)
  - Transfusion [Recovering/Resolving]
  - Malaise [Unknown]
  - Chest pain [Unknown]
  - Transfusion related complication [Unknown]

NARRATIVE: CASE EVENT DATE: 20240101
